FAERS Safety Report 4517324-X (Version None)
Quarter: 2004Q4

REPORT INFORMATION
  Report Type: 
  Country: None (occurrence: None)
  Receive Date: 20041007
  Receipt Date: 20031125
  Transmission Date: 20050328
  Serious: Yes (Death, Hospitalization, Other)
  Sender: FDA-Public Use
  Company Number: 2003-11-1872

PATIENT
  Age: 76 Year
  Sex: Male
  Weight: 61.2356 kg

DRUGS (5)
  1. TEMODAR [Suspect]
     Indication: METASTASES TO LIVER
     Dosage: 130MG QDX42 ORAL
     Route: 048
     Dates: start: 20030318, end: 20031014
  2. TEMODAR [Suspect]
     Indication: METASTATIC MALIGNANT MELANOMA
     Dosage: 130MG QDX42 ORAL
     Route: 048
     Dates: start: 20030318, end: 20031014
  3. THALIDOMIDE CAPSULES [Suspect]
     Indication: METASTASES TO LIVER
     Dosage: 100 MG QD ORAL
     Route: 048
     Dates: start: 20030318, end: 20031014
  4. THALIDOMIDE CAPSULES [Suspect]
     Indication: METASTATIC MALIGNANT MELANOMA
     Dosage: 100 MG QD ORAL
     Route: 048
     Dates: start: 20030318, end: 20031014
  5. ACIPHEX [Concomitant]

REACTIONS (5)
  - ASCITES [None]
  - CHROMATURIA [None]
  - DEEP VEIN THROMBOSIS [None]
  - DISEASE PROGRESSION [None]
  - OEDEMA PERIPHERAL [None]
